FAERS Safety Report 8387369-0 (Version None)
Quarter: 2012Q2

REPORT INFORMATION
  Report Type: 
  Country: None (occurrence: None)
  Receive Date: 20120525
  Receipt Date: 20120521
  Transmission Date: 20120825
  Serious: Yes (Death)
  Sender: FDA-Public Use
  Company Number: US-B.I. PHARMACEUTICALS,INC./RIDGEFIELD-2012-BP-11265BP

PATIENT
  Sex: Male

DRUGS (4)
  1. ACE INHIBITOR [Concomitant]
  2. TRADJENTA [Suspect]
     Indication: TYPE 2 DIABETES MELLITUS
  3. ARB [Concomitant]
  4. ZOCOR [Concomitant]

REACTIONS (1)
  - DEATH [None]
